FAERS Safety Report 25588855 (Version 2)
Quarter: 2025Q3

REPORT INFORMATION
  Report Type: Report from Study
  Country: US (occurrence: US)
  Receive Date: 20250722
  Receipt Date: 20250813
  Transmission Date: 20251021
  Serious: Yes (Hospitalization, Other)
  Sender: ALEXION PHARMACEUTICALS
  Company Number: US-AstraZeneca-CH-00911552A

PATIENT
  Sex: Female

DRUGS (1)
  1. ULTOMIRIS [Suspect]
     Active Substance: RAVULIZUMAB-CWVZ
     Indication: Neuromyelitis optica spectrum disorder
     Dosage: UNK, Q8W
     Route: 065

REACTIONS (12)
  - Cardiac failure [Unknown]
  - Neuromyelitis optica spectrum disorder [Unknown]
  - Hemiplegia [Unknown]
  - Pulmonary oedema [Unknown]
  - Pericardial effusion [Unknown]
  - Illness [Unknown]
  - Asthma [Unknown]
  - Blood pressure increased [Unknown]
  - Blood glucose abnormal [Unknown]
  - Immune system disorder [Unknown]
  - Neuralgia [Unknown]
  - Dyspepsia [Unknown]
